FAERS Safety Report 6702014-5 (Version None)
Quarter: 2010Q2

REPORT INFORMATION
  Report Type: 
  Country: None (occurrence: None)
  Receive Date: 20100429
  Receipt Date: 20100419
  Transmission Date: 20101027
  Serious: Yes (Other)
  Sender: FDA-Public Use
  Company Number: US-PFIZER INC-2010049893

PATIENT
  Sex: Male

DRUGS (1)
  1. CHANTIX [Suspect]
     Dosage: 1 TABLET PER DAY FOR 3 WEEKS
     Route: 048

REACTIONS (4)
  - ABNORMAL DREAMS [None]
  - AGITATION [None]
  - DRUG WITHDRAWAL SYNDROME [None]
  - MIDDLE INSOMNIA [None]
